FAERS Safety Report 15449904 (Version 1)
Quarter: 2018Q3

REPORT INFORMATION
  Report Type: Spontaneous
  Country: US (occurrence: US)
  Receive Date: 20180926
  Receipt Date: 20180926
  Transmission Date: 20181010
  Serious: Yes (Hospitalization)
  Sender: FDA-Public Use
  Company Number: None

PATIENT
  Age: 57 Year
  Sex: Female
  Weight: 105.75 kg

DRUGS (1)
  1. NITROFURANTON MONO 100MG CAP NOR/GENERIC NITROFURANTOIN MONOHYDRATE M [Suspect]
     Active Substance: NITROFURANTOIN\NITROFURANTOIN MONOHYDRATE
     Indication: URINARY TRACT INFECTION
     Dosage: ?          QUANTITY:1 CAPSULE(S);?
     Route: 048
     Dates: start: 20180810, end: 20180810

REACTIONS (4)
  - Chest pain [None]
  - Pain in jaw [None]
  - Dyspepsia [None]
  - Drug hypersensitivity [None]

NARRATIVE: CASE EVENT DATE: 20180810
